FAERS Safety Report 16643698 (Version 1)
Quarter: 2019Q3

REPORT INFORMATION
  Report Type: Spontaneous
  Country: US (occurrence: US)
  Receive Date: 20190729
  Receipt Date: 20190729
  Transmission Date: 20191004
  Serious: No
  Sender: FDA-Public Use
  Company Number: US-PRINSTON PHARMACEUTICAL INC.-2019PRN00177

PATIENT
  Sex: Female
  Weight: 63.49 kg

DRUGS (3)
  1. LOSARTAN POTASSIUM. [Suspect]
     Active Substance: LOSARTAN POTASSIUM
     Indication: HYPERTENSION
     Dosage: 100 MG, 1X/DAY
     Route: 048
     Dates: start: 2018
  2. SIMVASTATIN. [Concomitant]
     Active Substance: SIMVASTATIN
     Dosage: 20 MG, 1X/DAY
  3. LEVOTHYROXINE. [Concomitant]
     Active Substance: LEVOTHYROXINE
     Dosage: 88 ?G, 1X/DAY

REACTIONS (3)
  - Somnolence [Not Recovered/Not Resolved]
  - Fatigue [Not Recovered/Not Resolved]
  - Product substitution issue [Not Recovered/Not Resolved]

NARRATIVE: CASE EVENT DATE: 2018
